FAERS Safety Report 5701283-8 (Version None)
Quarter: 2008Q2

REPORT INFORMATION
  Report Type: 
  Country: None (occurrence: None)
  Receive Date: 20080410
  Receipt Date: 20080331
  Transmission Date: 20081010
  Serious: Yes (Other)
  Sender: FDA-Public Use
  Company Number: JP-PFIZER INC-2008028957

PATIENT
  Age: 89 Year
  Sex: Female

DRUGS (8)
  1. EPLERENONE [Suspect]
     Dosage: DAILY DOSE:50MG
     Route: 048
  2. PANALDINE [Concomitant]
     Route: 048
  3. JUVELA NICOTINATE [Concomitant]
     Route: 048
  4. CYANOCOBALAMIN [Concomitant]
     Route: 048
  5. GASMOTIN [Concomitant]
     Route: 048
  6. PRORENAL [Concomitant]
     Route: 048
  7. MAGNESIUM OXIDE [Concomitant]
     Route: 048
  8. EPADEL [Concomitant]
     Route: 048

REACTIONS (2)
  - CHROMATURIA [None]
  - FAECES DISCOLOURED [None]
